FAERS Safety Report 7496866-1 (Version None)
Quarter: 2011Q2

REPORT INFORMATION
  Report Type: 
  Country: None (occurrence: None)
  Receive Date: 20110523
  Receipt Date: 20110512
  Transmission Date: 20111010
  Serious: Yes (Other)
  Sender: FDA-Public Use
  Company Number: ES-ELI_LILLY_AND_COMPANY-ES201105004518

PATIENT
  Sex: Female

DRUGS (5)
  1. HUMALOG MIX 75/25 [Suspect]
     Indication: GESTATIONAL DIABETES
     Dosage: UNK UNK, PRN
     Route: 065
     Dates: start: 20100803, end: 20110316
  2. DIANBEN 850 [Concomitant]
     Indication: TYPE 2 DIABETES MELLITUS
     Dosage: UNK, BID
     Dates: start: 20060101, end: 20100803
  3. HUMALOG MIX 50/50 [Suspect]
     Indication: GESTATIONAL DIABETES
     Dosage: UNK, PRN
     Route: 065
     Dates: start: 20100803, end: 20110316
  4. BYETTA [Concomitant]
     Indication: TYPE 2 DIABETES MELLITUS
     Dosage: 10 UG, BID
     Route: 065
     Dates: start: 20091222, end: 20100803
  5. AMARYL [Concomitant]
     Indication: TYPE 2 DIABETES MELLITUS
     Dosage: 4 MG, QD
     Dates: start: 20060101, end: 20100803

REACTIONS (6)
  - ANXIETY [None]
  - HYPERTENSION [None]
  - ABORTION SPONTANEOUS [None]
  - OBESITY [None]
  - HYPERPHAGIA [None]
  - DRUG EXPOSURE DURING PREGNANCY [None]
